FAERS Safety Report 19711669 (Version 1)
Quarter: 2021Q3

REPORT INFORMATION
  Report Type: Report from Study
  Country: US (occurrence: US)
  Receive Date: 20210816
  Receipt Date: 20210816
  Transmission Date: 20211014
  Serious: No
  Sender: FDA-Public Use
  Company Number: US-TG THERAPEUTICS INC.-TGT001973

PATIENT
  Age: 80 Year
  Sex: Female

DRUGS (2)
  1. UMBRALISIB [Suspect]
     Active Substance: UMBRALISIB
     Indication: DIFFUSE LARGE B-CELL LYMPHOMA
     Dosage: 800 MILLIGRAM, QD
     Route: 048
  2. UMBRALISIB [Suspect]
     Active Substance: UMBRALISIB
     Dosage: 800 MILLIGRAM, QD
     Route: 048

REACTIONS (4)
  - Depression [Recovered/Resolved]
  - Diarrhoea [Recovering/Resolving]
  - Dyspepsia [Recovering/Resolving]
  - Nausea [Recovering/Resolving]

NARRATIVE: CASE EVENT DATE: 20210504
